FAERS Safety Report 18304105 (Version 1)
Quarter: 2020Q3

REPORT INFORMATION
  Report Type: Report from Study
  Country: GB (occurrence: GB)
  Receive Date: 20200923
  Receipt Date: 20200923
  Transmission Date: 20201103
  Serious: Yes (Hospitalization)
  Sender: FDA-Public Use
  Company Number: NVSC2020GB255004

PATIENT
  Sex: Female

DRUGS (1)
  1. OMNITROPE [Suspect]
     Active Substance: SOMATROPIN
     Indication: NATURAL KILLER T CELL COUNT
     Dosage: 0.45 MG, QD
     Route: 058

REACTIONS (2)
  - Diabetes mellitus [Unknown]
  - Off label use [Unknown]
